FAERS Safety Report 24572937 (Version 1)
Quarter: 2024Q4

REPORT INFORMATION
  Report Type: Spontaneous
  Country: BR (occurrence: BR)
  Receive Date: 20241101
  Receipt Date: 20241101
  Transmission Date: 20250114
  Serious: Yes (Other)
  Sender: NOVO NORDISK
  Company Number: BR-NOVOPROD-1295237

PATIENT
  Age: 746 Month
  Sex: Female
  Weight: 72.8 kg

DRUGS (9)
  1. WEGOVY [Suspect]
     Active Substance: SEMAGLUTIDE
     Dosage: UNK
     Dates: start: 20241001
  2. WEGOVY [Suspect]
     Active Substance: SEMAGLUTIDE
     Indication: Type 2 diabetes mellitus
     Dosage: 1 MG, QD
     Dates: start: 20240910
  3. WEGOVY [Suspect]
     Active Substance: SEMAGLUTIDE
     Indication: Type 2 diabetes mellitus
     Dosage: 1.7 MG, QD
     Route: 058
     Dates: start: 20241008
  4. LIVALO [Concomitant]
     Active Substance: PITAVASTATIN CALCIUM
     Indication: Blood cholesterol abnormal
     Dosage: 4 MG
  5. FOLIC ACID [Concomitant]
     Active Substance: FOLIC ACID
     Indication: Thalassaemia
     Dosage: 5 MG
  6. VITAMIN D3 [Concomitant]
     Active Substance: CHOLECALCIFEROL
     Indication: Thalassaemia
     Dosage: 10000 IU
  7. XIGDUO XR [Concomitant]
     Active Substance: DAPAGLIFLOZIN PROPANEDIOL\METFORMIN HYDROCHLORIDE
     Indication: Type 2 diabetes mellitus
     Dosage: 10X1000
  8. PIOGLITAZONE HYDROCHLORIDE [Concomitant]
     Active Substance: PIOGLITAZONE HYDROCHLORIDE
     Indication: Type 2 diabetes mellitus
     Dosage: 45 MG
  9. OSTEOTRAT [ALENDRONATE SODIUM] [Concomitant]
     Indication: Bone disorder
     Dosage: UNK

REACTIONS (4)
  - Diabetes mellitus [Not Recovered/Not Resolved]
  - Incorrect dose administered [Unknown]
  - Off label use [Unknown]
  - Product dispensing error [Unknown]

NARRATIVE: CASE EVENT DATE: 20240701
